FAERS Safety Report 6905229-6 (Version None)
Quarter: 2010Q3

REPORT INFORMATION
  Report Type: 
  Country: None (occurrence: None)
  Receive Date: 20100804
  Receipt Date: 20100722
  Transmission Date: 20110219
  Serious: Yes (Hospitalization)
  Sender: FDA-Public Use
  Company Number: ES-ELI_LILLY_AND_COMPANY-ES201007006055

PATIENT
  Sex: Female
  Weight: 95 kg

DRUGS (5)
  1. FORTEO [Suspect]
     Indication: OSTEOPOROSIS
     Dosage: 20 UG, DAILY (1/D)
     Route: 058
  2. FUROSEMIDA /00032601/ [Concomitant]
     Indication: POLYURIA
     Dosage: 1 D/F, DAILY (1/D)
     Route: 048
  3. INDAPAMIDA [Concomitant]
     Indication: HYPERTENSION
     Dosage: 1 D/F, DAILY (1/D)
     Route: 048
  4. LEXATIN [Concomitant]
     Indication: INSOMNIA
     Dosage: 1 D/F, DAILY (1/D)
     Route: 048
  5. NOLOTIL [Concomitant]
     Indication: PAIN
     Dosage: 1 D/F, DAILY (1/D)
     Route: 048

REACTIONS (2)
  - DRUG ADMINISTRATION ERROR [None]
  - HOSPITALISATION [None]
